FAERS Safety Report 7516993-X (Version None)
Quarter: 2011Q2

REPORT INFORMATION
  Report Type: 
  Country: None (occurrence: None)
  Receive Date: 20110601
  Receipt Date: 20110518
  Transmission Date: 20111010
  Serious: Yes (Disabling, Other)
  Sender: FDA-Public Use
  Company Number: PHHY2011US44459

PATIENT
  Sex: Male

DRUGS (8)
  1. DIOVAN [Suspect]
     Dosage: 80 MG, QD
  2. SIMVASTATIN [Suspect]
  3. INSULIN [Suspect]
  4. METFORMIN HCL [Concomitant]
  5. PLAVIX [Suspect]
     Dosage: 1 DF, QD
  6. ASPIRIN [Suspect]
     Dosage: 1 DF, QD
  7. CARVEDILOL [Suspect]
     Dosage: 2 DF, QD
  8. DIOVAN [Suspect]
     Dosage: 160 MG, QD

REACTIONS (2)
  - CEREBROVASCULAR ACCIDENT [None]
  - HYPOAESTHESIA [None]
